FAERS Safety Report 8443591-6 (Version None)
Quarter: 2012Q2

REPORT INFORMATION
  Report Type: 
  Country: None (occurrence: None)
  Receive Date: 20120618
  Receipt Date: 20120612
  Transmission Date: 20120825
  Serious: No
  Sender: FDA-Public Use
  Company Number: US-PFIZER INC-2012141799

PATIENT
  Sex: Female
  Weight: 73.923 kg

DRUGS (8)
  1. PROGESTERONE [Concomitant]
     Dosage: UNK
  2. TESTOSTERONE [Concomitant]
     Dosage: UNK
  3. SOMAVERT [Suspect]
     Dosage: 10 MG, 1X/DAY
     Dates: start: 20110101, end: 20120101
  4. LEVOTHYROXINE [Concomitant]
     Dosage: UNK
  5. EFFEXOR [Concomitant]
     Indication: DEPRESSION
     Dosage: UNK
  6. SOMAVERT [Suspect]
     Indication: INSULIN-LIKE GROWTH FACTOR DECREASED
     Dosage: 20 MG, 1X/DAY
     Dates: start: 20080401, end: 20110101
  7. HYDROCORTISONE [Concomitant]
     Dosage: UNK
  8. ESTROGEN NOS [Concomitant]
     Dosage: UNK

REACTIONS (1)
  - VITAMIN B12 DEFICIENCY [None]
